FAERS Safety Report 20420856 (Version 2)
Quarter: 2023Q2

REPORT INFORMATION
  Report Type: Spontaneous
  Country: US (occurrence: US)
  Receive Date: 20220203
  Receipt Date: 20230630
  Transmission Date: 20230722
  Serious: No
  Sender: FDA-Public Use
  Company Number: US-GW PHARMA-202201USGW00410

PATIENT
  Sex: Male

DRUGS (3)
  1. EPIDIOLEX [Suspect]
     Active Substance: CANNABIDIOL
     Indication: Partial seizures
     Dosage: 1700 MILLIGRAM
     Route: 048
     Dates: start: 20210909
  2. EPIDIOLEX [Suspect]
     Active Substance: CANNABIDIOL
     Indication: Epilepsy
     Dosage: 8.5 MILLILITER
     Route: 048
     Dates: start: 20220119
  3. EPIDIOLEX [Suspect]
     Active Substance: CANNABIDIOL
     Indication: Focal dyscognitive seizures
     Dosage: 8 MILLILITER, BID

REACTIONS (5)
  - Mood altered [Recovered/Resolved]
  - Hormone level abnormal [Unknown]
  - Fatigue [Unknown]
  - Weight decreased [Unknown]
  - Product use in unapproved indication [Unknown]
